FAERS Safety Report 6221545-8 (Version None)
Quarter: 2009Q2

REPORT INFORMATION
  Report Type: 
  Country: None (occurrence: None)
  Receive Date: 20090610
  Receipt Date: 20090528
  Transmission Date: 20091009
  Serious: Yes (Other)
  Sender: FDA-Public Use
  Company Number: US-ELI_LILLY_AND_COMPANY-US200905005623

PATIENT
  Sex: Female

DRUGS (6)
  1. HUMALOG [Suspect]
     Indication: TYPE 1 DIABETES MELLITUS
     Dosage: UNK, AS NEEDED
  2. HUMALOG [Suspect]
     Dosage: 25 U, UNK
     Dates: start: 20090506, end: 20090506
  3. LANTUS [Concomitant]
     Dosage: 25 U, EACH EVENING
  4. LISINOPRIL [Concomitant]
  5. PRAVACHOL [Concomitant]
  6. SYNTHROID [Concomitant]

REACTIONS (1)
  - WRONG DRUG ADMINISTERED [None]
